FAERS Safety Report 25061652 (Version 1)
Quarter: 2025Q1

REPORT INFORMATION
  Report Type: Spontaneous
  Country: US (occurrence: US)
  Receive Date: 20250311
  Receipt Date: 20250311
  Transmission Date: 20250409
  Serious: Yes (Other)
  Sender: NOVO NORDISK
  Company Number: US-NOVOPROD-1384547

PATIENT
  Age: 37 Year
  Sex: Female

DRUGS (2)
  1. TRESIBA [Suspect]
     Active Substance: INSULIN DEGLUDEC
     Indication: Type 1 diabetes mellitus
     Dosage: 12 U, QD (ADDITIONALLY WOULD TAKE 13-14 UNITS IF HAD ANY INFECTION)
     Route: 058
     Dates: start: 2020, end: 2024
  2. LANTUS [Concomitant]
     Active Substance: INSULIN GLARGINE
     Indication: Type 1 diabetes mellitus
     Dates: start: 202412

REACTIONS (6)
  - Neuropathic arthropathy [Not Recovered/Not Resolved]
  - Blindness [Not Recovered/Not Resolved]
  - Chronic kidney disease [Not Recovered/Not Resolved]
  - Bone deformity [Recovered/Resolved]
  - Urinary tract infection [Recovering/Resolving]
  - Wrong technique in product usage process [Not Recovered/Not Resolved]

NARRATIVE: CASE EVENT DATE: 20210101
